FAERS Safety Report 24574302 (Version 1)
Quarter: 2024Q4

REPORT INFORMATION
  Report Type: Spontaneous
  Country: US (occurrence: None)
  Receive Date: 20241104
  Receipt Date: 20241104
  Transmission Date: 20250115
  Serious: No
  Sender: Valinor Pharma
  Company Number: US-ARIS GLOBAL-VLR202404-000054

PATIENT
  Age: 78 Year
  Sex: Female

DRUGS (4)
  1. MOVANTIK [Suspect]
     Active Substance: NALOXEGOL OXALATE
     Indication: Constipation
     Dosage: UNK
     Route: 048
  2. KRAZATI [Concomitant]
     Active Substance: ADAGRASIB
     Indication: Lung neoplasm malignant
     Route: 048
     Dates: start: 20240315
  3. KRAZATI [Concomitant]
     Active Substance: ADAGRASIB
     Route: 048
     Dates: start: 20240322
  4. KRAZATI [Concomitant]
     Active Substance: ADAGRASIB
     Dosage: 600 MILLIGRAM IN MORNING AND 400 MILLIGRAM IN EVENING
     Route: 048
     Dates: start: 20240406

REACTIONS (2)
  - Diarrhoea [Not Recovered/Not Resolved]
  - Off label use [Unknown]
